FAERS Safety Report 8522314-6 (Version None)
Quarter: 2012Q3

REPORT INFORMATION
  Report Type: 
  Country: None (occurrence: None)
  Receive Date: 20120719
  Receipt Date: 20120717
  Transmission Date: 20120928
  Serious: Yes (Hospitalization)
  Sender: FDA-Public Use
  Company Number: CA-ELI_LILLY_AND_COMPANY-CA201207005679

PATIENT
  Age: 65 Year
  Sex: Female

DRUGS (9)
  1. FORTEO [Suspect]
     Indication: OSTEOPOROSIS
     Dosage: 20 UG, QD
     Route: 058
     Dates: start: 20110706
  2. RAMIPRIL [Concomitant]
  3. VERAPAMIL [Concomitant]
  4. CLOPIDOGREL MYLAN [Concomitant]
  5. ATORVASTATIN [Concomitant]
  6. VITAMIN D [Concomitant]
  7. ADVAIR DISKUS 100/50 [Concomitant]
  8. VENTOLIN                                /SCH/ [Concomitant]
  9. ASPIRIN [Concomitant]

REACTIONS (1)
  - STENT PLACEMENT [None]
